FAERS Safety Report 24718808 (Version 3)
Quarter: 2025Q1

REPORT INFORMATION
  Report Type: Spontaneous
  Country: TR (occurrence: TR)
  Receive Date: 20241210
  Receipt Date: 20250217
  Transmission Date: 20250408
  Serious: Yes (Life-Threatening, Hospitalization, Other)
  Sender: NOVARTIS
  Company Number: TR-002147023-NVSC2024TR234427

PATIENT
  Age: 50 Year
  Sex: Female
  Weight: 92 kg

DRUGS (1)
  1. SECUKINUMAB [Suspect]
     Active Substance: SECUKINUMAB
     Indication: Product used for unknown indication
     Dosage: UNK UNK, QMO (DOSE: 150) (VIAL CONTAINING LYOPHILIZED)
     Route: 058
     Dates: start: 20220122, end: 20230615

REACTIONS (2)
  - Endometrial cancer [Recovering/Resolving]
  - Vaginal haemorrhage [Recovering/Resolving]

NARRATIVE: CASE EVENT DATE: 20231101
